FAERS Safety Report 25052204 (Version 1)
Quarter: 2025Q1

REPORT INFORMATION
  Report Type: Spontaneous
  Country: US (occurrence: US)
  Receive Date: 20250307
  Receipt Date: 20250307
  Transmission Date: 20250408
  Serious: Yes (Other)
  Sender: PFIZER
  Company Number: US-PFIZER INC-PV202500026065

PATIENT
  Age: 74 Year
  Sex: Female

DRUGS (30)
  1. SOLU-MEDROL [Suspect]
     Active Substance: METHYLPREDNISOLONE SODIUM SUCCINATE
  2. DIAZEPAM [Concomitant]
     Active Substance: DIAZEPAM
  3. LEVOTHYROXINE [Concomitant]
     Active Substance: LEVOTHYROXINE
  4. DICYCLOMINE [Concomitant]
     Active Substance: DICYCLOMINE HYDROCHLORIDE
  5. COPAXONE [Concomitant]
     Active Substance: GLATIRAMER ACETATE
  6. MYRBETRIQ [Concomitant]
     Active Substance: MIRABEGRON
  7. HYDROCHLOROTHIAZIDE\LOSARTAN [Concomitant]
     Active Substance: HYDROCHLOROTHIAZIDE\LOSARTAN
  8. OMEPRAZOLE [Concomitant]
     Active Substance: OMEPRAZOLE
  9. AZELASTINE HYDROCHLORIDE AND FLUTICASONE PROPIONATE [Concomitant]
     Active Substance: AZELASTINE HYDROCHLORIDE\FLUTICASONE PROPIONATE
  10. WIXELA INHUB [Concomitant]
     Active Substance: FLUTICASONE PROPIONATE\SALMETEROL XINAFOATE
  11. SPIRIVA RESPIMAT [Concomitant]
     Active Substance: TIOTROPIUM BROMIDE
  12. LYRICA [Concomitant]
     Active Substance: PREGABALIN
  13. CYMBALTA [Concomitant]
     Active Substance: DULOXETINE HYDROCHLORIDE
  14. ZETIA [Concomitant]
     Active Substance: EZETIMIBE
  15. PRAVASTATIN [Concomitant]
     Active Substance: PRAVASTATIN
  16. MONTELUKAST [Concomitant]
     Active Substance: MONTELUKAST
  17. OXCARBAZEPINE [Concomitant]
     Active Substance: OXCARBAZEPINE
  18. CARVEDILOL [Concomitant]
     Active Substance: CARVEDILOL
  19. JANUMET XR [Concomitant]
     Active Substance: METFORMIN HYDROCHLORIDE\SITAGLIPTIN PHOSPHATE
  20. ASPIRIN [Concomitant]
     Active Substance: ASPIRIN
  21. CHOLECALCIFEROL [Concomitant]
     Active Substance: CHOLECALCIFEROL
  22. OMEGA-3 FATTY ACIDS [Concomitant]
     Active Substance: OMEGA-3 FATTY ACIDS
  23. COBAMAMIDE [Concomitant]
     Active Substance: COBAMAMIDE
  24. VITAMIN B6 [Concomitant]
     Active Substance: PYRIDOXINE HYDROCHLORIDE
  25. SENTRY SENIOR [Concomitant]
  26. MAGNESIUM OXIDE [Concomitant]
     Active Substance: MAGNESIUM OXIDE
  27. PRASTERONE [Concomitant]
     Active Substance: PRASTERONE
  28. RETINOL [Concomitant]
     Active Substance: RETINOL
  29. BIOTIN [Concomitant]
     Active Substance: BIOTIN
  30. TIZANIDINE [Concomitant]
     Active Substance: TIZANIDINE

REACTIONS (3)
  - Diabetes mellitus [Unknown]
  - Tachycardia [Unknown]
  - Blood pressure increased [Unknown]
